FAERS Safety Report 9633058 (Version 1)
Quarter: 2013Q4

REPORT INFORMATION
  Report Type: Report from Study
  Country: US (occurrence: US)
  Receive Date: 20131018
  Receipt Date: 20131018
  Transmission Date: 20140711
  Serious: Yes (Hospitalization, Disabling)
  Sender: FDA-Public Use
  Company Number: US-ROCHE-1289466

PATIENT
  Age: 43 Year
  Sex: Female

DRUGS (8)
  1. XELODA [Suspect]
     Indication: PANCREATIC NEUROENDOCRINE TUMOUR METASTATIC
     Route: 065
  2. XELODA [Suspect]
     Indication: METASTASES TO LIVER
  3. XELODA [Suspect]
     Indication: VON HIPPEL-LINDAU DISEASE
  4. ERIVEDGE [Suspect]
     Indication: PANCREATIC NEUROENDOCRINE TUMOUR METASTATIC
     Route: 065
     Dates: start: 200907, end: 20130304
  5. ERIVEDGE [Suspect]
     Indication: METASTASES TO LIVER
  6. ERIVEDGE [Suspect]
     Indication: VON HIPPEL-LINDAU DISEASE
  7. SIROLIMUS [Concomitant]
     Route: 065
     Dates: start: 200907, end: 20130304
  8. TEMOZOLOMIDE [Concomitant]
     Route: 065

REACTIONS (12)
  - Nausea [Unknown]
  - Fatigue [Unknown]
  - Metastases to liver [Unknown]
  - Pancreatic neuroendocrine tumour metastatic [Unknown]
  - Abdominal distension [Unknown]
  - Malignant ascites [Unknown]
  - Blood pressure decreased [Unknown]
  - Oedema peripheral [Unknown]
  - Asthenia [Unknown]
  - Pain in extremity [Unknown]
  - Fracture [Unknown]
  - Lymphadenopathy [Unknown]
